FAERS Safety Report 6510261-0 (Version None)
Quarter: 2009Q4

REPORT INFORMATION
  Report Type: 
  Country: None (occurrence: None)
  Receive Date: 20091221
  Receipt Date: 20091221
  Transmission Date: 20100525
  Serious: Yes (Hospitalization)
  Sender: FDA-Public Use
  Company Number: None

PATIENT
  Age: 34 Year
  Sex: Female
  Weight: 90 kg

DRUGS (4)
  1. METOCLOPRAMIDE 10 MG / 2ML SICOR [Suspect]
     Indication: NAUSEA
     Dosage: 10 MG ONE TIME IV
     Route: 042
     Dates: start: 20091216, end: 20091216
  2. METOCLOPRAMIDE 10 MG / 2ML SICOR [Suspect]
     Indication: VOMITING
     Dosage: 10 MG ONE TIME IV
     Route: 042
     Dates: start: 20091216, end: 20091216
  3. PROMETHAZINE 25 MG/ML BAXTER HEALTHCARE CORP. [Suspect]
     Indication: NAUSEA
     Dosage: 12.5 MG TWO DOSES IV
     Route: 042
  4. PROMETHAZINE 25 MG/ML BAXTER HEALTHCARE CORP. [Suspect]
     Indication: VOMITING
     Dosage: 12.5 MG TWO DOSES IV
     Route: 042

REACTIONS (3)
  - AKATHISIA [None]
  - EXTRAPYRAMIDAL DISORDER [None]
  - HEADACHE [None]
